FAERS Safety Report 17086299 (Version 1)
Quarter: 2019Q4

REPORT INFORMATION
  Report Type: Spontaneous
  Country: US (occurrence: US)
  Receive Date: 20191127
  Receipt Date: 20191127
  Transmission Date: 20200122
  Serious: Yes (Other)
  Sender: FDA-Public Use
  Company Number: None

PATIENT
  Age: 30 Year
  Sex: Female
  Weight: 51.75 kg

DRUGS (3)
  1. ARMOUR THYROID [Concomitant]
     Active Substance: THYROID, PORCINE
  2. VITAMIN D [Concomitant]
     Active Substance: VITAMIN D NOS
  3. CORTIZONE 10 [Suspect]
     Active Substance: HYDROCORTISONE
     Indication: ECZEMA
     Route: 061

REACTIONS (3)
  - Red man syndrome [None]
  - Drug withdrawal syndrome [None]
  - Incorrect product administration duration [None]

NARRATIVE: CASE EVENT DATE: 20181226
